FAERS Safety Report 25577233 (Version 2)
Quarter: 2025Q3

REPORT INFORMATION
  Report Type: Spontaneous
  Country: US (occurrence: US)
  Receive Date: 20250718
  Receipt Date: 20250724
  Transmission Date: 20251020
  Serious: Yes (Other)
  Sender: MYLAN
  Company Number: US-MYLANLABS-2025M1060091

PATIENT
  Age: 7 Decade
  Sex: Male

DRUGS (36)
  1. TRAVOPROST [Suspect]
     Active Substance: TRAVOPROST
     Indication: Glaucoma
     Dosage: UNK UNK, QD (NIGHTLY)
  2. TRAVOPROST [Suspect]
     Active Substance: TRAVOPROST
     Dosage: UNK UNK, QD (NIGHTLY)
     Route: 061
  3. TRAVOPROST [Suspect]
     Active Substance: TRAVOPROST
     Dosage: UNK UNK, QD (NIGHTLY)
     Route: 061
  4. TRAVOPROST [Suspect]
     Active Substance: TRAVOPROST
     Dosage: UNK UNK, QD (NIGHTLY)
  5. LATANOPROST [Suspect]
     Active Substance: LATANOPROST
     Indication: Glaucoma
     Dosage: UNK UNK, QD (NIGHTLY)
  6. LATANOPROST [Suspect]
     Active Substance: LATANOPROST
     Dosage: UNK UNK, QD (NIGHTLY)
     Route: 061
  7. LATANOPROST [Suspect]
     Active Substance: LATANOPROST
     Dosage: UNK UNK, QD (NIGHTLY)
     Route: 061
  8. LATANOPROST [Suspect]
     Active Substance: LATANOPROST
     Dosage: UNK UNK, QD (NIGHTLY)
  9. TIMOLOL [Suspect]
     Active Substance: TIMOLOL
     Indication: Glaucoma
     Dosage: UNK, QD (DROPS)
  10. TIMOLOL [Suspect]
     Active Substance: TIMOLOL
     Dosage: UNK, QD (DROPS)
  11. TIMOLOL [Suspect]
     Active Substance: TIMOLOL
     Dosage: UNK, QD (DROPS)
     Route: 061
  12. TIMOLOL [Suspect]
     Active Substance: TIMOLOL
     Dosage: UNK, QD (DROPS)
     Route: 061
  13. TIMOLOL [Suspect]
     Active Substance: TIMOLOL
     Dosage: UNK, BID (DROPS)
  14. TIMOLOL [Suspect]
     Active Substance: TIMOLOL
     Dosage: UNK, BID (DROPS)
  15. TIMOLOL [Suspect]
     Active Substance: TIMOLOL
     Dosage: UNK, BID (DROPS)
     Route: 061
  16. TIMOLOL [Suspect]
     Active Substance: TIMOLOL
     Dosage: UNK, BID (DROPS)
     Route: 061
  17. NETARSUDIL [Suspect]
     Active Substance: NETARSUDIL
     Indication: Glaucoma
     Dosage: UNK UNK, QD (NIGHTLY)
  18. NETARSUDIL [Suspect]
     Active Substance: NETARSUDIL
     Dosage: UNK UNK, QD (NIGHTLY)
     Route: 061
  19. NETARSUDIL [Suspect]
     Active Substance: NETARSUDIL
     Dosage: UNK UNK, QD (NIGHTLY)
     Route: 061
  20. NETARSUDIL [Suspect]
     Active Substance: NETARSUDIL
     Dosage: UNK UNK, QD (NIGHTLY)
  21. LATANOPROST\NETARSUDIL MESYLATE [Suspect]
     Active Substance: LATANOPROST\NETARSUDIL MESYLATE
     Indication: Glaucoma
     Dosage: UNK UNK, QD (NIGHTLY)
  22. LATANOPROST\NETARSUDIL MESYLATE [Suspect]
     Active Substance: LATANOPROST\NETARSUDIL MESYLATE
     Dosage: UNK UNK, QD (NIGHTLY)
     Route: 061
  23. LATANOPROST\NETARSUDIL MESYLATE [Suspect]
     Active Substance: LATANOPROST\NETARSUDIL MESYLATE
     Dosage: UNK UNK, QD (NIGHTLY)
     Route: 061
  24. LATANOPROST\NETARSUDIL MESYLATE [Suspect]
     Active Substance: LATANOPROST\NETARSUDIL MESYLATE
     Dosage: UNK UNK, QD (NIGHTLY)
  25. BRIMONIDINE [Suspect]
     Active Substance: BRIMONIDINE TARTRATE
     Indication: Glaucoma
     Dosage: UNK UNK, BID
  26. BRIMONIDINE [Suspect]
     Active Substance: BRIMONIDINE TARTRATE
     Dosage: UNK UNK, BID
     Route: 061
  27. BRIMONIDINE [Suspect]
     Active Substance: BRIMONIDINE TARTRATE
     Dosage: UNK UNK, BID
     Route: 061
  28. BRIMONIDINE [Suspect]
     Active Substance: BRIMONIDINE TARTRATE
     Dosage: UNK UNK, BID
  29. DORZOLAMIDE\TIMOLOL [Suspect]
     Active Substance: DORZOLAMIDE\TIMOLOL
     Indication: Glaucoma
     Dosage: UNK UNK, QD (22.3/6.8?MG/ML)
  30. DORZOLAMIDE\TIMOLOL [Suspect]
     Active Substance: DORZOLAMIDE\TIMOLOL
     Dosage: UNK UNK, QD (22.3/6.8?MG/ML)
  31. DORZOLAMIDE\TIMOLOL [Suspect]
     Active Substance: DORZOLAMIDE\TIMOLOL
     Dosage: UNK UNK, QD (22.3/6.8?MG/ML)
     Route: 061
  32. DORZOLAMIDE\TIMOLOL [Suspect]
     Active Substance: DORZOLAMIDE\TIMOLOL
     Dosage: UNK UNK, QD (22.3/6.8?MG/ML)
     Route: 061
  33. DORZOLAMIDE\TIMOLOL [Suspect]
     Active Substance: DORZOLAMIDE\TIMOLOL
     Dosage: UNK UNK, BID (22.3/6.8?MG/ML)
  34. DORZOLAMIDE\TIMOLOL [Suspect]
     Active Substance: DORZOLAMIDE\TIMOLOL
     Dosage: UNK UNK, BID (22.3/6.8?MG/ML)
  35. DORZOLAMIDE\TIMOLOL [Suspect]
     Active Substance: DORZOLAMIDE\TIMOLOL
     Dosage: UNK UNK, BID (22.3/6.8?MG/ML)
     Route: 061
  36. DORZOLAMIDE\TIMOLOL [Suspect]
     Active Substance: DORZOLAMIDE\TIMOLOL
     Dosage: UNK UNK, BID (22.3/6.8?MG/ML)
     Route: 061

REACTIONS (1)
  - Hypotony of eye [Recovering/Resolving]
